FAERS Safety Report 25192299 (Version 1)
Quarter: 2025Q2

REPORT INFORMATION
  Report Type: Report from Study
  Country: US (occurrence: US)
  Receive Date: 20250414
  Receipt Date: 20250414
  Transmission Date: 20250717
  Serious: Yes (Other)
  Sender: MYLAN
  Company Number: US-MYLANLABS-2024M1047891

PATIENT
  Sex: Male

DRUGS (4)
  1. ELETRIPTAN HYDROBROMIDE [Suspect]
     Active Substance: ELETRIPTAN HYDROBROMIDE
     Indication: Headache
  2. ELETRIPTAN HYDROBROMIDE [Suspect]
     Active Substance: ELETRIPTAN HYDROBROMIDE
     Indication: Migraine
  3. RELPAX [Suspect]
     Active Substance: ELETRIPTAN HYDROBROMIDE
     Indication: Headache
  4. RELPAX [Suspect]
     Active Substance: ELETRIPTAN HYDROBROMIDE
     Indication: Migraine

REACTIONS (5)
  - Drug dependence [Unknown]
  - Insomnia [Unknown]
  - Drug ineffective [Unknown]
  - Product substitution issue [Unknown]
  - Therapeutic product effect delayed [Unknown]
